FAERS Safety Report 19304461 (Version 2)
Quarter: 2022Q1

REPORT INFORMATION
  Report Type: Spontaneous
  Country: US (occurrence: US)
  Receive Date: 20210525
  Receipt Date: 20220308
  Transmission Date: 20220423
  Serious: No
  Sender: FDA-Public Use
  Company Number: US-PFIZER INC-2021143258

PATIENT
  Age: 41 Year
  Sex: Female
  Weight: 42.64 kg

DRUGS (1)
  1. RELPAX [Suspect]
     Active Substance: ELETRIPTAN HYDROBROMIDE
     Indication: Headache
     Dosage: 20 MG, AS NEEDED (TAKE 1 TAB BY MOUTH AS DIRECTED FOR HEADACHE, MAY REPEAT AFTER 2 HOURS IF NEEDED M
     Route: 048

REACTIONS (2)
  - Off label use [Unknown]
  - Migraine [Recovered/Resolved]
